FAERS Safety Report 22165787 (Version 3)
Quarter: 2023Q2

REPORT INFORMATION
  Report Type: Spontaneous
  Country: US (occurrence: US)
  Receive Date: 20230403
  Receipt Date: 20230424
  Transmission Date: 20230721
  Serious: Yes (Other)
  Sender: FDA-Public Use
  Company Number: US-002147023-NVSC2023US072115

PATIENT
  Age: 76 Year
  Sex: Female
  Weight: 44.9 kg

DRUGS (4)
  1. TOBRADEX [Suspect]
     Active Substance: DEXAMETHASONE\TOBRAMYCIN
     Indication: Swelling of eyelid
     Dosage: 3.5 G, TID (APPLY 0.5 INCHES TO LEFT EYE THREE TIMES A DAILY FOR 14 DAYS-AS PER PRESCRIPTION AND USE
     Route: 061
     Dates: start: 20230302, end: 20230310
  2. TOBRADEX [Suspect]
     Active Substance: DEXAMETHASONE\TOBRAMYCIN
     Indication: Eyelid infection
     Dosage: 3.5 G, BID (TWO TIMES A DAY THEN ONE TIME A DAY)
     Route: 061
  3. TOBRADEX [Suspect]
     Active Substance: DEXAMETHASONE\TOBRAMYCIN
     Dosage: 3.5 G, QD (THEN ONE TIME A DAY)
     Route: 061
  4. TOBRADEX [Suspect]
     Active Substance: DEXAMETHASONE\TOBRAMYCIN
     Dosage: UNK, TID (3X DAILY) FOR 14 DAYS
     Route: 065

REACTIONS (4)
  - Blister [Not Recovered/Not Resolved]
  - Eye irritation [Not Recovered/Not Resolved]
  - Scab [Not Recovered/Not Resolved]
  - Eyelid cyst [Not Recovered/Not Resolved]

NARRATIVE: CASE EVENT DATE: 20230305
